FAERS Safety Report 12409189 (Version 1)
Quarter: 2016Q2

REPORT INFORMATION
  Report Type: Report from Study
  Country: CN (occurrence: CN)
  Receive Date: 20160526
  Receipt Date: 20160526
  Transmission Date: 20160815
  Serious: Yes (Hospitalization)
  Sender: FDA-Public Use
  Company Number: CN-ASTRAZENECA-2016SE54891

PATIENT
  Age: 27097 Day
  Sex: Female
  Weight: 64 kg

DRUGS (2)
  1. METOPROLOL SUSTAINED-RELEASE TABLETS [Suspect]
     Active Substance: METOPROLOL TARTRATE
     Route: 065
  2. BRILINTA [Suspect]
     Active Substance: TICAGRELOR
     Indication: ACUTE CORONARY SYNDROME
     Route: 048
     Dates: start: 20151112

REACTIONS (3)
  - Crepitations [None]
  - Coronary artery disease [Recovered/Resolved]
  - Atrial fibrillation [None]

NARRATIVE: CASE EVENT DATE: 20160503
